FAERS Safety Report 11885468 (Version 1)
Quarter: 2015Q4

REPORT INFORMATION
  Report Type: Spontaneous
  Country: US (occurrence: None)
  Receive Date: 20151231
  Receipt Date: 20151231
  Transmission Date: 20160305
  Serious: Yes (Life-Threatening, Hospitalization)
  Sender: FDA-Public Use
  Company Number: None

PATIENT
  Age: 50 Year
  Sex: Male
  Weight: 77.7 kg

DRUGS (2)
  1. GABAPENTIN. [Suspect]
     Active Substance: GABAPENTIN
     Indication: PAIN
     Route: 048
     Dates: start: 20150626, end: 20150908
  2. ESZOPICLONE. [Suspect]
     Active Substance: ESZOPICLONE
     Indication: INSOMNIA
     Route: 048
     Dates: start: 20150626, end: 20150908

REACTIONS (6)
  - Joint injury [None]
  - Feeling abnormal [None]
  - Syncope [None]
  - Altered state of consciousness [None]
  - Road traffic accident [None]
  - Confusional state [None]

NARRATIVE: CASE EVENT DATE: 20150904
